FAERS Safety Report 13414241 (Version 1)
Quarter: 2017Q2

REPORT INFORMATION
  Report Type: Spontaneous
  Country: GB (occurrence: GB)
  Receive Date: 20170407
  Receipt Date: 20170407
  Transmission Date: 20170830
  Serious: Yes (Other)
  Sender: FDA-Public Use
  Company Number: GB-PFIZER INC-2017143948

PATIENT
  Age: 31 Year
  Sex: Female
  Weight: 62 kg

DRUGS (3)
  1. IBUPROFEN. [Concomitant]
     Active Substance: IBUPROFEN
     Indication: PAIN
     Dosage: OCCASIONALLY.
  2. NEURONTIN [Suspect]
     Active Substance: GABAPENTIN
     Indication: NEURALGIA
     Dosage: 100 MG, 3X/DAY
     Route: 048
     Dates: start: 20170205
  3. COCODAMOL [Concomitant]
     Active Substance: ACETAMINOPHEN\CODEINE PHOSPHATE
     Indication: PAIN
     Dosage: OCCASIONALLY

REACTIONS (9)
  - Tremor [Recovered/Resolved]
  - Alcohol interaction [Recovered/Resolved]
  - Judgement impaired [Recovered/Resolved]
  - Grip strength decreased [Recovered/Resolved]
  - Sudden onset of sleep [Recovered/Resolved]
  - Feeling abnormal [Recovered/Resolved]
  - Cognitive disorder [Recovered/Resolved]
  - Product use in unapproved indication [Unknown]
  - Condition aggravated [Unknown]

NARRATIVE: CASE EVENT DATE: 20170205
